FAERS Safety Report 21233867 (Version 2)
Quarter: 2022Q3

REPORT INFORMATION
  Report Type: Report from Study
  Country: IT (occurrence: IT)
  Receive Date: 20220819
  Receipt Date: 20220830
  Transmission Date: 20221026
  Serious: Yes (Death, Other)
  Sender: FDA-Public Use
  Company Number: IT-TAKEDA-2022TUS055843

PATIENT
  Age: 57 Year
  Sex: Female
  Weight: 80 kg

DRUGS (2)
  1. MOBOCERTINIB [Suspect]
     Active Substance: MOBOCERTINIB
     Indication: Lung adenocarcinoma
     Dosage: 160 MILLIGRAM, QD
     Route: 048
     Dates: start: 20220701
  2. EDOXABAN TOSYLATE [Concomitant]
     Active Substance: EDOXABAN TOSYLATE
     Indication: Pulmonary embolism
     Dosage: 60 MILLIGRAM, QD
     Route: 048
     Dates: start: 202205

REACTIONS (2)
  - Respiratory failure [Fatal]
  - Lung adenocarcinoma [Fatal]

NARRATIVE: CASE EVENT DATE: 20220811
